FAERS Safety Report 17796251 (Version 5)
Quarter: 2021Q2

REPORT INFORMATION
  Report Type: Report from Study
  Country: US (occurrence: US)
  Receive Date: 20200517
  Receipt Date: 20210519
  Transmission Date: 20210716
  Serious: Yes (Hospitalization, Other)
  Sender: FDA-Public Use
  Company Number: NVSC2020US134259

PATIENT
  Age: 76 Year
  Sex: Female

DRUGS (2)
  1. ENTRESTO [Suspect]
     Active Substance: SACUBITRIL\VALSARTAN
     Dosage: 1 DF, BID
     Route: 048
     Dates: start: 201806
  2. ENTRESTO [Suspect]
     Active Substance: SACUBITRIL\VALSARTAN
     Indication: CARDIAC FAILURE
     Dosage: 100 MG, BID (49/51MG)
     Route: 048
     Dates: start: 20180630

REACTIONS (9)
  - Bundle branch block [Unknown]
  - Cystitis [Unknown]
  - Infection [Unknown]
  - Macular degeneration [Unknown]
  - Therapeutic product effect incomplete [Unknown]
  - Pulmonary thrombosis [Recovered/Resolved]
  - Asthma [Unknown]
  - Condition aggravated [Unknown]
  - Thrombosis [Recovered/Resolved]

NARRATIVE: CASE EVENT DATE: 201812
